FAERS Safety Report 7450573-X (Version None)
Quarter: 2011Q2

REPORT INFORMATION
  Report Type: 
  Country: None (occurrence: None)
  Receive Date: 20110422
  Receipt Date: 20110408
  Transmission Date: 20111010
  Serious: Yes (Other)
  Sender: FDA-Public Use
  Company Number: 029514

PATIENT
  Sex: Female

DRUGS (3)
  1. XYZAL [Suspect]
     Indication: RHINITIS ALLERGIC
     Dosage: (5 MG QD ORAL)
     Route: 048
     Dates: start: 20110310, end: 20110313
  2. PRANLUKAST [Concomitant]
  3. FLUTICASONE PROPIONATE [Concomitant]

REACTIONS (6)
  - HEAD INJURY [None]
  - ALTERED STATE OF CONSCIOUSNESS [None]
  - DIZZINESS [None]
  - FEELING ABNORMAL [None]
  - ORAL DISORDER [None]
  - MALAISE [None]
